FAERS Safety Report 12537382 (Version 1)
Quarter: 2016Q3

REPORT INFORMATION
  Report Type: Spontaneous
  Country: BR (occurrence: BR)
  Receive Date: 20160707
  Receipt Date: 20160707
  Transmission Date: 20161109
  Serious: Yes (Other)
  Sender: FDA-Public Use
  Company Number: BR-JNJFOC-20160700858

PATIENT
  Age: 56 Year
  Sex: Male

DRUGS (1)
  1. SPORANOX [Suspect]
     Active Substance: ITRACONAZOLE
     Indication: SYSTEMIC CANDIDA
     Route: 065
     Dates: start: 201506, end: 20160626

REACTIONS (7)
  - Cardiac failure [Unknown]
  - Weight increased [Unknown]
  - Malaise [Unknown]
  - Peripheral swelling [Unknown]
  - Dyspnoea [Unknown]
  - Sleep disorder [Unknown]
  - Self-medication [Unknown]

NARRATIVE: CASE EVENT DATE: 20160627
